FAERS Safety Report 18591079 (Version 3)
Quarter: 2021Q1

REPORT INFORMATION
  Report Type: Spontaneous
  Country: SE (occurrence: SE)
  Receive Date: 20201208
  Receipt Date: 20210209
  Transmission Date: 20210419
  Serious: Yes (Other)
  Sender: FDA-Public Use
  Company Number: SE-REGENERON PHARMACEUTICALS, INC.-2020-89398

PATIENT

DRUGS (2)
  1. EYLEA [Suspect]
     Active Substance: AFLIBERCEPT
     Dosage: 1 DF, ONCE (RIGHT EYE)
     Route: 031
     Dates: start: 20201112, end: 20201112
  2. EYLEA [Suspect]
     Active Substance: AFLIBERCEPT
     Indication: PRODUCT USED FOR UNKNOWN INDICATION
     Dosage: UNK;  TOTAL DOSE OF EYLEA PRIOR TO THE EVENT IS 9DF. LAST DOSE OF EYLEA PRIOR TO THE EVENT IS 12?NOV
     Route: 031

REACTIONS (3)
  - Endophthalmitis [Not Recovered/Not Resolved]
  - Blindness [Unknown]
  - Retinal detachment [Unknown]

NARRATIVE: CASE EVENT DATE: 20201113
